FAERS Safety Report 14668929 (Version 1)
Quarter: 2018Q1

REPORT INFORMATION
  Report Type: Report from Study
  Country: US (occurrence: US)
  Receive Date: 20180322
  Receipt Date: 20180322
  Transmission Date: 20180509
  Serious: Yes (Death)
  Sender: FDA-Public Use
  Company Number: US-ACTELION-A-NJ2018-169495

PATIENT
  Age: 90 Year
  Sex: Female

DRUGS (7)
  1. MEGASTROL [Concomitant]
  2. LOVASTATIN. [Concomitant]
     Active Substance: LOVASTATIN
  3. VIRT-CAPS [Concomitant]
     Active Substance: ASCORBIC ACID\BIOTIN\CALCIUM PANTOTHENATE\CYANOCOBALAMIN\FOLIC ACID\NIACINAMIDE\PYRIDOXINE HYDROCHLORIDE\RIBOFLAVIN\THIAMINE MONONITRATE
  4. ULORIC [Concomitant]
     Active Substance: FEBUXOSTAT
  5. TRACLEER [Suspect]
     Active Substance: BOSENTAN
     Indication: ESSENTIAL HYPERTENSION
     Dosage: 125 MG, UNK
     Route: 048
  6. LEVOTHYROXIN [Concomitant]
     Active Substance: LEVOTHYROXINE
  7. BUMETANIDE. [Concomitant]
     Active Substance: BUMETANIDE

REACTIONS (1)
  - Death [Fatal]
